FAERS Safety Report 5537610-4 (Version None)
Quarter: 2007Q4

REPORT INFORMATION
  Report Type: 
  Country: None (occurrence: None)
  Receive Date: 20071207
  Receipt Date: 20071129
  Transmission Date: 20080405
  Serious: Yes (Death, Life-Threatening, Hospitalization)
  Sender: FDA-Public Use
  Company Number: US-ASTRAZENECA-2007UW25601

PATIENT
  Age: 11 Year
  Sex: Female

DRUGS (5)
  1. SYMBICORT [Suspect]
     Route: 055
     Dates: start: 20070901
  2. ALBUTEROL [Suspect]
  3. MAXAIR [Suspect]
  4. MOTRIN [Suspect]
  5. PREDNISONE TAB [Concomitant]

REACTIONS (3)
  - ASTHMA [None]
  - BRAIN HERNIATION [None]
  - CARDIO-RESPIRATORY ARREST [None]
